FAERS Safety Report 8376720-3 (Version None)
Quarter: 2012Q2

REPORT INFORMATION
  Report Type: 
  Country: None (occurrence: None)
  Receive Date: 20120522
  Receipt Date: 20120509
  Transmission Date: 20120825
  Serious: Yes (Hospitalization)
  Sender: FDA-Public Use
  Company Number: JP-NAPPMUNDI-MAG-2012-0002114

PATIENT
  Sex: Male

DRUGS (6)
  1. OXYCODONE HCL [Suspect]
     Dosage: 5 MG, BID
     Route: 048
     Dates: start: 20120301, end: 20120319
  2. MAGMITT [Concomitant]
     Indication: CONSTIPATION PROPHYLAXIS
     Dosage: 3 DF, DAILY
     Route: 048
  3. ZOLEDRONIC ACID [Concomitant]
     Indication: HYPERCALCAEMIA
     Dosage: UNK
  4. OXYCODONE HCL [Suspect]
     Indication: PAIN
     Dosage: 2.5 MG, PRN
     Route: 048
     Dates: end: 20120402
  5. OXYCODONE HCL [Suspect]
     Indication: PAIN
     Dosage: 10 MG, BID
     Route: 048
     Dates: start: 20120319, end: 20120330
  6. AMLODIPINE [Concomitant]
     Indication: HYPERTENSION
     Dosage: 5 MG, DAILY
     Route: 048

REACTIONS (4)
  - BLOOD CREATININE INCREASED [None]
  - NAUSEA [None]
  - DEHYDRATION [None]
  - DECREASED APPETITE [None]
